FAERS Safety Report 19075639 (Version 1)
Quarter: 2021Q1

REPORT INFORMATION
  Report Type: Spontaneous
  Country: FR (occurrence: FR)
  Receive Date: 20210331
  Receipt Date: 20210331
  Transmission Date: 20210420
  Serious: Yes (Death, Hospitalization)
  Sender: FDA-Public Use
  Company Number: FR-TEVA-2021-FR-1895571

PATIENT
  Age: 59 Year
  Sex: Male

DRUGS (7)
  1. IRINOTECAN [Concomitant]
     Active Substance: IRINOTECAN
     Indication: COLORECTAL CANCER METASTATIC
     Dosage: MONOTHERAPY
     Route: 065
     Dates: start: 20171206, end: 20180206
  2. RALTITREXED [Suspect]
     Active Substance: RALTITREXED
     Dosage: EVERY THREE WEEKS
     Route: 042
     Dates: start: 20180206, end: 20181005
  3. TIPIRACIL/TRIFLURIDINE [Suspect]
     Active Substance: TIPIRACIL HYDROCHLORIDE\TRIFLURIDINE
     Indication: COLORECTAL CANCER METASTATIC
     Route: 065
     Dates: start: 20181005
  4. OXALIPLATIN. [Suspect]
     Active Substance: OXALIPLATIN
     Route: 042
     Dates: start: 20170827, end: 20171206
  5. BEVACIZUMAB. [Suspect]
     Active Substance: BEVACIZUMAB
     Indication: COLORECTAL CANCER METASTATIC
     Dosage: RECEIVED 4 CYCLES
     Route: 065
     Dates: start: 20170827, end: 20171025
  6. RALTITREXED [Suspect]
     Active Substance: RALTITREXED
     Indication: COLORECTAL CANCER METASTATIC
     Dosage: RECEIVED CONCOMITANT WITH BEVACIZUMAB THERAPY
     Route: 042
     Dates: start: 20170827, end: 20171206
  7. OXALIPLATIN. [Suspect]
     Active Substance: OXALIPLATIN
     Indication: COLORECTAL CANCER METASTATIC
     Dosage: HEPATIC ARTERIAL INFUSION; EVERY THREE WEEKS
     Route: 050
     Dates: start: 20180206, end: 20181005

REACTIONS (3)
  - Septic shock [Recovered/Resolved]
  - Adrenal haematoma [Recovering/Resolving]
  - Adrenal insufficiency [Recovered/Resolved]

NARRATIVE: CASE EVENT DATE: 201711
